FAERS Safety Report 19700894 (Version 1)
Quarter: 2021Q3

REPORT INFORMATION
  Report Type: Spontaneous
  Country: GB (occurrence: GB)
  Receive Date: 20210813
  Receipt Date: 20210813
  Transmission Date: 20211014
  Serious: Yes (Hospitalization)
  Sender: FDA-Public Use
  Company Number: GB-VERTEX PHARMACEUTICALS-2021-012173

PATIENT
  Sex: Female

DRUGS (2)
  1. KAFTRIO [Suspect]
     Active Substance: ELEXACAFTOR\IVACAFTOR\TEZACAFTOR
     Indication: CYSTIC FIBROSIS
     Dosage: 2 TABS (75MG IVA/50G TEZA/100MG ELEXA) AM
     Route: 048
     Dates: start: 202009
  2. KALYDECO [Suspect]
     Active Substance: IVACAFTOR
     Indication: CYSTIC FIBROSIS
     Dosage: 150 MG IVA, IN THE EVENING
     Route: 048
     Dates: start: 202009

REACTIONS (2)
  - Exposure during pregnancy [Unknown]
  - Complication of pregnancy [Unknown]

NARRATIVE: CASE EVENT DATE: 2021
